FAERS Safety Report 5970017-4 (Version None)
Quarter: 2008Q4

REPORT INFORMATION
  Report Type: 
  Country: None (occurrence: None)
  Receive Date: 20081126
  Receipt Date: 20081117
  Transmission Date: 20090506
  Serious: Yes (Death, Hospitalization)
  Sender: FDA-Public Use
  Company Number: KR-MERCK-0810KOR00035

PATIENT
  Age: 79 Year
  Sex: Female
  Weight: 43 kg

DRUGS (2)
  1. FOSAMAX PLUS D [Suspect]
     Indication: OSTEOPOROSIS
     Route: 048
     Dates: start: 20070709, end: 20070716
  2. CALCIUM POLYSTYRENE SULFONATE [Concomitant]
     Indication: CARDIOVASCULAR DISORDER
     Route: 065
     Dates: start: 20080501, end: 20080501

REACTIONS (3)
  - ATRIAL FIBRILLATION [None]
  - PNEUMONIA [None]
  - RENAL FAILURE CHRONIC [None]
